FAERS Safety Report 9885438 (Version 2)
Quarter: 2014Q1

REPORT INFORMATION
  Report Type: Spontaneous
  Country: JP (occurrence: JP)
  Receive Date: 20140210
  Receipt Date: 20140210
  Transmission Date: 20141002
  Serious: Yes (Other)
  Sender: FDA-Public Use
  Company Number: JP-EISAI INC-E7389-04404-SPO-JP

PATIENT
  Age: 56 Year
  Sex: Female

DRUGS (3)
  1. HALAVEN [Suspect]
     Indication: BREAST CANCER RECURRENT
     Dosage: 1.4 MG/M2
     Route: 041
     Dates: start: 20130411, end: 201311
  2. HALAVEN [Suspect]
     Dosage: 1.4 MG/M2
     Route: 041
     Dates: start: 20131118
  3. RANMARK [Concomitant]
     Indication: PRODUCT USED FOR UNKNOWN INDICATION
     Dosage: UNKNOWN
     Route: 042

REACTIONS (2)
  - Conjunctivitis [Recovered/Resolved]
  - Stomatitis [Recovered/Resolved]
